FAERS Safety Report 4526216-1 (Version None)
Quarter: 2004Q4

REPORT INFORMATION
  Report Type: 
  Country: None (occurrence: None)
  Receive Date: 20041210
  Receipt Date: 20041206
  Transmission Date: 20050328
  Serious: Yes (Disabling)
  Sender: FDA-Public Use
  Company Number: A044-002-005341

PATIENT
  Age: 81 Year
  Sex: Female

DRUGS (5)
  1. ARICEPT [Suspect]
     Indication: DEMENTIA
     Dosage: SEE IMAGE
     Route: 048
  2. BENDROFLUAZIDE (BENDROFLUAZIDE) [Concomitant]
  3. PERINDOPRIL (PERINDOPRIL) [Concomitant]
  4. SIMVASTATIN [Concomitant]
  5. ASPIRIN [Concomitant]

REACTIONS (2)
  - MYOCARDIAL INFARCTION [None]
  - PARKINSONISM [None]
